FAERS Safety Report 9548027 (Version 1)
Quarter: 2013Q2

REPORT INFORMATION
  Report Type: Spontaneous
  Country: US (occurrence: None)
  Receive Date: 20130627
  Receipt Date: 20130627
  Transmission Date: 20140414
  Serious: Yes (Other)
  Sender: FDA-Public Use
  Company Number: 1000043328

PATIENT
  Age: 59 Year
  Sex: Female
  Weight: 89.36 kg

DRUGS (9)
  1. LINZESS [Suspect]
     Indication: IRRITABLE BOWEL SYNDROME
     Route: 048
     Dates: start: 20130220
  2. LISINOPRIL [Concomitant]
  3. CRESTOR (ROSUVASTATIN CALCIUM) [Concomitant]
  4. EFFEXOR XR (VENLAFAXINE HYDROCHLORIDE) [Concomitant]
  5. PHENTERMINE (PHENTERMINE) [Concomitant]
  6. TOPIRAMATE (TOPIRAMATE) [Concomitant]
  7. ETODOLAC (ETODOLAC) [Concomitant]
  8. METHOCARBAMOL (METHOCARBAMOL) [Concomitant]
  9. PREDNISONE (PREDNISONE) [Concomitant]

REACTIONS (1)
  - Drug ineffective [None]
